FAERS Safety Report 6507668 (Version 4)
Quarter: 2020Q3

REPORT INFORMATION
  Report Type: Report from Study
  Country: US (occurrence: US)
  Receive Date: 20071218
  Receipt Date: 20090205
  Transmission Date: 20201104
  Serious: Yes (Other)
  Sender: FDA-Public Use
  Company Number: US-JNJFOC-20071200746

PATIENT
  Age: 41 Year
  Sex: Female

DRUGS (10)
  1. PROTONIX [Concomitant]
     Active Substance: PANTOPRAZOLE SODIUM
     Indication: GASTROOESOPHAGEAL REFLUX DISEASE
     Dosage: STARTED PRE?TRIAL
     Route: 065
  2. OXYCONTIN [Concomitant]
     Active Substance: OXYCODONE HYDROCHLORIDE
     Indication: BACK PAIN
     Dosage: STARTED PRE?TRIAL
     Route: 065
  3. POTASSIUM CHLORIDE. [Concomitant]
     Active Substance: POTASSIUM CHLORIDE
     Indication: HYPOKALAEMIA
     Route: 065
  4. PROPULSID [Suspect]
     Active Substance: CISAPRIDE
     Route: 048
  5. PROPULSID [Suspect]
     Active Substance: CISAPRIDE
     Indication: GASTROINTESTINAL DISORDER
     Route: 048
  6. PRAVACHOL [Concomitant]
     Active Substance: PRAVASTATIN SODIUM
     Indication: HYPERLIPIDAEMIA
     Dosage: STARTED PRE?TRIAL
     Route: 065
  7. ZETIA [Concomitant]
     Active Substance: EZETIMIBE
     Indication: HYPERLIPIDAEMIA
     Dosage: STARTED PRE?TRIAL
     Route: 065
  8. PROPULSID [Suspect]
     Active Substance: CISAPRIDE
     Indication: GASTROINTESTINAL DISORDER
     Route: 048
  9. SOMA [Concomitant]
     Active Substance: CARISOPRODOL
     Indication: MUSCLE RELAXANT THERAPY
     Dosage: ONCE EVERY 8 HOURS, TAKEN AS REQUIRED, STARTED PRE?TRIAL
     Route: 065
  10. INSULIN NOS [Concomitant]
     Active Substance: INSULIN NOS
     Indication: DIABETES MELLITUS
     Dosage: STARTED PRE?TRIAL
     Route: 065

REACTIONS (2)
  - Electrocardiogram QT prolonged [Recovered/Resolved]
  - Electrolyte imbalance [Recovered/Resolved]

NARRATIVE: CASE EVENT DATE: 20061129
